FAERS Safety Report 9658795 (Version 2)
Quarter: 2013Q4

REPORT INFORMATION
  Report Type: Spontaneous
  Country: US (occurrence: US)
  Receive Date: 20131030
  Receipt Date: 20131030
  Transmission Date: 20140711
  Serious: Yes (Other)
  Sender: FDA-Public Use
  Company Number: US-NAPPMUNDI-USA-2010-0046807

PATIENT
  Age: 36 Year
  Sex: Female
  Weight: 61 kg

DRUGS (7)
  1. OXYCONTIN (NDA 22-272) [Suspect]
     Indication: COMPLEX REGIONAL PAIN SYNDROME
     Dosage: 80 MG, SEE TEXT
     Dates: start: 20100910
  2. OXYCODONE HCL IR CAPSULES [Suspect]
     Indication: PRODUCT USED FOR UNKNOWN INDICATION
  3. XANAX [Concomitant]
     Indication: PRODUCT USED FOR UNKNOWN INDICATION
     Dosage: UNK
  4. CYMBALTA [Concomitant]
     Indication: PRODUCT USED FOR UNKNOWN INDICATION
     Dosage: 30 MG, DAILY
  5. PREVACID [Concomitant]
     Indication: PRODUCT USED FOR UNKNOWN INDICATION
  6. AMBIEN [Concomitant]
     Indication: PRODUCT USED FOR UNKNOWN INDICATION
  7. TOPROL [Concomitant]
     Indication: HYPERTENSION

REACTIONS (6)
  - Hallucinations, mixed [Unknown]
  - Inadequate analgesia [Recovered/Resolved]
  - Pruritus [Unknown]
  - Restlessness [Unknown]
  - Insomnia [Unknown]
  - Activities of daily living impaired [Recovered/Resolved]
